FAERS Safety Report 10142572 (Version 2)
Quarter: 2018Q1

REPORT INFORMATION
  Report Type: Report from Study
  Country: US (occurrence: US)
  Receive Date: 20140430
  Receipt Date: 20180118
  Transmission Date: 20180508
  Serious: Yes (Other)
  Sender: FDA-Public Use
  Company Number: US-ROCHE-1390634

PATIENT
  Age: 7 Year
  Sex: Male
  Weight: 30.9 kg

DRUGS (3)
  1. LEVOTHYROXINE. [Concomitant]
     Active Substance: LEVOTHYROXINE
     Route: 048
  2. CLONAZEPAM. [Suspect]
     Active Substance: CLONAZEPAM
     Indication: PRODUCT USED FOR UNKNOWN INDICATION
     Route: 048
  3. NUTROPIN AQ [Suspect]
     Active Substance: SOMATROPIN
     Indication: HYPOPITUITARISM
     Route: 058

REACTIONS (9)
  - Epiphyses delayed fusion [Unknown]
  - Arthralgia [Unknown]
  - Blood thyroid stimulating hormone increased [Unknown]
  - Insulin-like growth factor increased [Unknown]
  - Growth retardation [Unknown]
  - Decreased appetite [Unknown]
  - Developmental hip dysplasia [Unknown]
  - Eczema [Unknown]
  - Temperature intolerance [Unknown]

NARRATIVE: CASE EVENT DATE: 20140303
